FAERS Safety Report 9029143 (Version 4)
Quarter: 2013Q3

REPORT INFORMATION
  Report Type: Spontaneous
  Country: US (occurrence: US)
  Receive Date: 20130124
  Receipt Date: 20130826
  Transmission Date: 20140515
  Serious: Yes (Hospitalization, Other)
  Sender: FDA-Public Use
  Company Number: US-009507513-1301USA011228

PATIENT
  Sex: Female

DRUGS (7)
  1. FOSAMAX [Suspect]
     Indication: OSTEOPENIA
     Dosage: 70 MG, QW
     Route: 048
     Dates: start: 200506
  2. FOSAMAX [Suspect]
     Indication: OSTEOPOROSIS
  3. FOSAMAX PLUS D [Suspect]
     Indication: OSTEOPENIA
     Dosage: 70 MG, QW
     Route: 048
     Dates: start: 2008, end: 201103
  4. FOSAMAX PLUS D [Suspect]
     Indication: OSTEOPOROSIS
  5. ALENDRONATE SODIUM [Suspect]
     Dosage: 70 MG, QW
     Route: 048
  6. HORMONES (UNSPECIFIED) [Concomitant]
     Indication: POSTMENOPAUSE
     Dosage: UNK
     Dates: start: 2004
  7. PREMARIN [Concomitant]
     Indication: POSTMENOPAUSE
     Dosage: 0.625 MG, UNK
     Route: 067

REACTIONS (27)
  - Femur fracture [Recovered/Resolved]
  - Open reduction of fracture [Unknown]
  - Anaemia postoperative [Unknown]
  - Cholecystectomy [Unknown]
  - Deafness [Unknown]
  - Fracture delayed union [Unknown]
  - Depression [Unknown]
  - Hyperlipidaemia [Unknown]
  - Calcium deficiency [Unknown]
  - Peptic ulcer [Unknown]
  - Hypertension [Unknown]
  - Iron deficiency anaemia [Unknown]
  - Hysterectomy [Unknown]
  - Bronchitis [Unknown]
  - Atrophic vulvovaginitis [Unknown]
  - Dermatitis [Unknown]
  - Herpes zoster [Unknown]
  - Uterine prolapse [Unknown]
  - Actinic keratosis [Unknown]
  - Urinary tract infection [Unknown]
  - Cystocele [Unknown]
  - Psoriasis [Unknown]
  - Breast cyst [Unknown]
  - Urge incontinence [Not Recovered/Not Resolved]
  - Blood pressure increased [Unknown]
  - Hypophosphataemia [Unknown]
  - Gastrooesophageal reflux disease [Unknown]
